FAERS Safety Report 7290210-0 (Version None)
Quarter: 2011Q1

REPORT INFORMATION
  Report Type: 
  Country: None (occurrence: None)
  Receive Date: 20110214
  Receipt Date: 20110204
  Transmission Date: 20110831
  Serious: Yes (Hospitalization)
  Sender: FDA-Public Use
  Company Number: PHHY2011NL09971

PATIENT
  Sex: Male

DRUGS (3)
  1. ZOMETA [Suspect]
     Indication: PROSTATE CANCER
     Dosage: 4 MG/5ML PER 28 DAYS
     Dates: start: 20091019
  2. ZOMETA [Suspect]
     Dosage: UNK
     Dates: start: 20110107
  3. ZOMETA [Suspect]
     Dosage: UNK
     Dates: start: 20110202

REACTIONS (3)
  - CEREBRAL HAEMORRHAGE [None]
  - PNEUMONIA [None]
  - COUGH [None]
